FAERS Safety Report 5128077-9 (Version None)
Quarter: 2006Q4

REPORT INFORMATION
  Report Type: 
  Country: None (occurrence: None)
  Receive Date: 20061010
  Receipt Date: 20060926
  Transmission Date: 20070319
  Serious: Yes (Congenital Anomaly)
  Sender: FDA-Public Use
  Company Number: 148087ISR

PATIENT
  Sex: Female

DRUGS (1)
  1. TRIMETHOPRIM TABLETS 200 MG (TRIMETHOPRIM) [Suspect]
     Indication: URINARY TRACT INFECTION
     Dosage: 400 MG (200 MG, 2 IN 1 D)
     Route: 048
     Dates: start: 20051128, end: 20051129

REACTIONS (3)
  - ABORTION SPONTANEOUS [None]
  - CONGENITAL ANOMALY [None]
  - DRUG EXPOSURE DURING PREGNANCY [None]
